FAERS Safety Report 8326403-0 (Version None)
Quarter: 2012Q2

REPORT INFORMATION
  Report Type: 
  Country: None (occurrence: None)
  Receive Date: 20120501
  Receipt Date: 20120424
  Transmission Date: 20120825
  Serious: Yes (Hospitalization, Other)
  Sender: FDA-Public Use
  Company Number: US-MERCK-1202USA02276

PATIENT
  Age: 77 Year
  Sex: Female

DRUGS (8)
  1. FOSAMAX [Suspect]
     Route: 048
     Dates: start: 20010201
  2. FOSAMAX [Suspect]
     Route: 048
     Dates: start: 20000701, end: 20001201
  3. VITAMIN D (UNSPECIFIED) [Concomitant]
     Indication: OSTEOPOROSIS
     Route: 065
  4. FOSAMAX [Suspect]
     Route: 048
     Dates: start: 20010201
  5. FOSAMAX [Suspect]
     Indication: OSTEOPOROSIS
     Route: 048
     Dates: start: 20030101, end: 20080101
  6. FOSAMAX [Suspect]
     Indication: OSTEOPENIA
     Route: 048
     Dates: start: 20030101, end: 20080101
  7. FOSAMAX [Suspect]
     Route: 048
     Dates: start: 20000701, end: 20001201
  8. CALCIUM (UNSPECIFIED) [Concomitant]
     Indication: OSTEOPOROSIS
     Route: 065

REACTIONS (20)
  - BREAST CANCER STAGE II [None]
  - ASTHMA [None]
  - TOOTH INFECTION [None]
  - HYPERTENSION [None]
  - CORONARY ARTERY DISEASE [None]
  - BONE LOSS [None]
  - UTERINE DISORDER [None]
  - CHRONIC OBSTRUCTIVE PULMONARY DISEASE [None]
  - SPINAL COLUMN STENOSIS [None]
  - FATIGUE [None]
  - CARDIAC MURMUR [None]
  - GINGIVITIS [None]
  - OSTEONECROSIS OF JAW [None]
  - INAPPROPRIATE SCHEDULE OF DRUG ADMINISTRATION [None]
  - ARRHYTHMIA [None]
  - LOOSE TOOTH [None]
  - PERIODONTITIS [None]
  - TOOTH FRACTURE [None]
  - HYPERLIPIDAEMIA [None]
  - BLADDER DISORDER [None]
